FAERS Safety Report 17531534 (Version 1)
Quarter: 2020Q1

REPORT INFORMATION
  Report Type: Spontaneous
  Country: US (occurrence: US)
  Receive Date: 20200312
  Receipt Date: 20200312
  Transmission Date: 20200409
  Serious: Yes (Other)
  Sender: FDA-Public Use
  Company Number: US-GLAXOSMITHKLINE-US2020041041

PATIENT
  Sex: Female

DRUGS (1)
  1. VENTOLIN HFA [Suspect]
     Active Substance: ALBUTEROL SULFATE
     Indication: PRODUCT USED FOR UNKNOWN INDICATION
     Dosage: UNK
     Route: 055

REACTIONS (9)
  - Adverse drug reaction [Unknown]
  - Fatigue [Unknown]
  - Influenza like illness [Unknown]
  - Ill-defined disorder [Unknown]
  - Arthropod bite [Unknown]
  - Gait disturbance [Unknown]
  - Mental impairment [Unknown]
  - Product dose omission [Unknown]
  - Respiratory tract congestion [Unknown]
